FAERS Safety Report 6309843-0 (Version None)
Quarter: 2009Q3

REPORT INFORMATION
  Report Type: 
  Country: None (occurrence: None)
  Receive Date: 20090814
  Receipt Date: 20090805
  Transmission Date: 20100115
  Serious: Yes (Death, Hospitalization, Other)
  Sender: FDA-Public Use
  Company Number: US-JNJFOC-20090801566

PATIENT
  Sex: Male
  Weight: 91.17 kg

DRUGS (5)
  1. REMICADE [Suspect]
     Route: 042
  2. REMICADE [Suspect]
     Indication: COLITIS ULCERATIVE
     Route: 042
  3. MERCAPTOPURINE [Concomitant]
     Indication: COLITIS ULCERATIVE
  4. ASACOL [Concomitant]
     Indication: COLITIS ULCERATIVE
  5. MULTI-VITAMINS [Concomitant]

REACTIONS (2)
  - FALL [None]
  - GLIOBLASTOMA MULTIFORME [None]
